FAERS Safety Report 4367548-X (Version None)
Quarter: 2004Q2

REPORT INFORMATION
  Report Type: 
  Country: None (occurrence: None)
  Receive Date: 20040601
  Receipt Date: 20040503
  Transmission Date: 20050107
  Serious: No
  Sender: FDA-Public Use
  Company Number: US-MERCK-0405USA00131

PATIENT
  Age: 70 Year
  Sex: Female

DRUGS (2)
  1. FOSAMAX [Suspect]
     Indication: OSTEOPOROSIS
     Route: 048
     Dates: start: 19960101
  2. FOSAMAX [Suspect]
     Route: 048

REACTIONS (2)
  - FOOT FRACTURE [None]
  - FRACTURE DELAYED UNION [None]
